FAERS Safety Report 5158335-3 (Version None)
Quarter: 2006Q4

REPORT INFORMATION
  Report Type: 
  Country: None (occurrence: None)
  Receive Date: 20061128
  Receipt Date: 20061114
  Transmission Date: 20070319
  Serious: Yes (Other)
  Sender: FDA-Public Use
  Company Number: NL-JNJFOC-20061104219

PATIENT
  Sex: Female

DRUGS (3)
  1. TOPAMAX [Suspect]
     Indication: EPILEPSY
     Route: 048
  2. DIPHANTOINE [Concomitant]
     Route: 048
  3. RIVOTRIL [Concomitant]
     Route: 048

REACTIONS (7)
  - ALANINE AMINOTRANSFERASE INCREASED [None]
  - APHASIA [None]
  - ASPARTATE AMINOTRANSFERASE INCREASED [None]
  - GAMMA-GLUTAMYLTRANSFERASE INCREASED [None]
  - INFLUENZA LIKE ILLNESS [None]
  - LIVER FUNCTION TEST ABNORMAL [None]
  - WEIGHT DECREASED [None]
